FAERS Safety Report 12451547 (Version 2)
Quarter: 2016Q2

REPORT INFORMATION
  Report Type: Report from Study
  Country: BR (occurrence: BR)
  Receive Date: 20160609
  Receipt Date: 20160614
  Transmission Date: 20160815
  Serious: No
  Sender: FDA-Public Use
  Company Number: BR-GLAXOSMITHKLINE-BR2016GSK081691

PATIENT
  Sex: Female

DRUGS (1)
  1. FLUTICASONE PROPIONATE+SALMETEROL XINAFOATE [Suspect]
     Active Substance: FLUTICASONE PROPIONATE\SALMETEROL XINAFOATE
     Indication: PRODUCT USED FOR UNKNOWN INDICATION
     Dosage: 2 PUFF(S), BID, 25/125 MCG

REACTIONS (3)
  - Rhinitis [Unknown]
  - Treatment noncompliance [Unknown]
  - Asthma [Unknown]
